FAERS Safety Report 7818523-1 (Version None)
Quarter: 2011Q4

REPORT INFORMATION
  Report Type: 
  Country: None (occurrence: None)
  Receive Date: 20111017
  Receipt Date: 20111013
  Transmission Date: 20120403
  Serious: Yes (Hospitalization, Disabling, Other)
  Sender: FDA-Public Use
  Company Number: US-MERCK-0812USA01751

PATIENT
  Age: 58 Year
  Sex: Female
  Weight: 62 kg

DRUGS (12)
  1. FOSAMAX [Suspect]
     Route: 048
     Dates: start: 19981028, end: 20030110
  2. FATTY ACIDS (UNSPECIFIED) [Concomitant]
     Route: 065
     Dates: start: 19990101
  3. VITA C [Concomitant]
     Route: 065
     Dates: start: 19990101
  4. EVION (VITAMIN E) [Concomitant]
     Route: 065
  5. CALCIUM CARBONATE [Concomitant]
     Route: 065
     Dates: start: 19990101
  6. LOVAZA [Concomitant]
     Route: 065
     Dates: start: 19990101
  7. VITAMINS (UNSPECIFIED) [Concomitant]
     Route: 065
     Dates: start: 19990101
  8. BETA CAROTENE [Concomitant]
     Route: 065
     Dates: start: 19990101
  9. VITAMIN D (UNSPECIFIED) [Concomitant]
     Route: 065
     Dates: start: 19990101
  10. FOSAMAX [Suspect]
     Indication: OSTEOPOROSIS
     Route: 048
     Dates: start: 20040111, end: 20080123
  11. CALCIUM (UNSPECIFIED) AND VITAMIN D (UNSPECIFIED) [Concomitant]
     Indication: VITAMIN D DEFICIENCY
     Route: 065
     Dates: start: 19990101
  12. EVION (VITAMIN E) [Concomitant]
     Route: 065
     Dates: start: 19990101

REACTIONS (57)
  - MOBILITY DECREASED [None]
  - TENDONITIS [None]
  - MALIGNANT MELANOMA IN SITU [None]
  - ADJUSTMENT DISORDER [None]
  - EXOSTOSIS [None]
  - HYPERTENSION [None]
  - TOOTH DISORDER [None]
  - NERVE ROOT LESION [None]
  - ARTHRALGIA [None]
  - PLANTAR FASCIITIS [None]
  - MACULAR CYST [None]
  - BLOOD PRESSURE INCREASED [None]
  - HYPERPARATHYROIDISM [None]
  - NEUROFIBROMA [None]
  - MUSCULOSKELETAL DISCOMFORT [None]
  - PHOBIA [None]
  - ARTHROPATHY [None]
  - BONE DISORDER [None]
  - INTERVERTEBRAL DISC DEGENERATION [None]
  - NERVOUSNESS [None]
  - AMNESIA [None]
  - MUSCULAR WEAKNESS [None]
  - HYPERTHYROIDISM [None]
  - BALANCE DISORDER [None]
  - OSTEOPOROSIS [None]
  - ARTHRITIS [None]
  - HERPES VIRUS INFECTION [None]
  - FLATULENCE [None]
  - NERVE ROOT INJURY [None]
  - VITAMIN D DEFICIENCY [None]
  - SPINAL DISORDER [None]
  - JOINT HYPEREXTENSION [None]
  - CORNEAL ABRASION [None]
  - MUSCULOSKELETAL PAIN [None]
  - BONE LESION [None]
  - LOW TURNOVER OSTEOPATHY [None]
  - AXILLARY MASS [None]
  - BLOOD CALCIUM INCREASED [None]
  - RETCHING [None]
  - NIGHT SWEATS [None]
  - MOTOR NEURONE DISEASE [None]
  - BRUXISM [None]
  - SKIN IRRITATION [None]
  - FOLLICULITIS [None]
  - METAL POISONING [None]
  - RENAL DISORDER [None]
  - FATIGUE [None]
  - FEMUR FRACTURE [None]
  - STRESS FRACTURE [None]
  - PAIN IN EXTREMITY [None]
  - DYSPEPSIA [None]
  - JOINT DISLOCATION [None]
  - GINGIVAL BLEEDING [None]
  - SLEEP DISORDER [None]
  - TOXICOLOGIC TEST ABNORMAL [None]
  - SPINAL OSTEOARTHRITIS [None]
  - ABDOMINAL DISTENSION [None]
